FAERS Safety Report 23399537 (Version 1)
Quarter: 2024Q1

REPORT INFORMATION
  Report Type: Report from Study
  Country: AU (occurrence: AU)
  Receive Date: 20240113
  Receipt Date: 20240113
  Transmission Date: 20240410
  Serious: Yes (Hospitalization)
  Sender: FDA-Public Use
  Company Number: AU-ABBVIE-21P-008-3896144-00

PATIENT
  Age: 66 Year
  Sex: Female
  Weight: 79 kg

DRUGS (28)
  1. VENETOCLAX [Suspect]
     Active Substance: VENETOCLAX
     Indication: Acute myeloid leukaemia
     Route: 048
     Dates: start: 20210407, end: 20210416
  2. VENETOCLAX [Suspect]
     Active Substance: VENETOCLAX
     Indication: Acute myeloid leukaemia
     Route: 048
     Dates: start: 20210526
  3. CITALOPRAM [Concomitant]
     Active Substance: CITALOPRAM HYDROBROMIDE
     Indication: Depression
     Route: 065
     Dates: start: 2000
  4. CYTARABINE [Concomitant]
     Active Substance: CYTARABINE
     Indication: Acute myeloid leukaemia
     Route: 058
     Dates: start: 20210407, end: 20210416
  5. Macrogel Plus Electrolytes [Concomitant]
     Indication: Constipation
     Dosage: TIME INTERVAL: AS NECESSARY
     Route: 065
     Dates: start: 202003
  6. Methenamine Hippurate (Hexamine Hippurate) [Concomitant]
     Indication: Prophylaxis urinary tract infection
     Route: 065
     Dates: start: 202002
  7. CEPHALEXIN [Concomitant]
     Active Substance: CEPHALEXIN
     Indication: Prophylaxis urinary tract infection
     Dosage: TIME INTERVAL: 0.33333333 DAYS
     Route: 065
     Dates: start: 20210106, end: 20211122
  8. METOCLOPRAMIDE [Concomitant]
     Active Substance: METOCLOPRAMIDE
     Indication: Nausea
     Dosage: TIME INTERVAL: AS NECESSARY
     Route: 065
     Dates: start: 202003
  9. Estradiol MR [Concomitant]
     Indication: Hormone replacement therapy
     Dosage: PESSARY MON/WED/FRI
     Route: 067
     Dates: start: 201912
  10. Red cell transfusion [Concomitant]
     Indication: Red blood cell count decreased
     Route: 065
     Dates: start: 20211124, end: 20211124
  11. ONDANSETRON [Concomitant]
     Active Substance: ONDANSETRON
     Indication: Nausea
     Dosage: TIME INTERVAL: AS NECESSARY
     Route: 048
     Dates: start: 20210331
  12. Valaciclovir				- [Concomitant]
     Indication: Product used for unknown indication
     Route: 065
     Dates: start: 202003
  13. HYDROXYCHLOROQUINE SULFATE [Concomitant]
     Active Substance: HYDROXYCHLOROQUINE SULFATE
     Indication: Arthritis
     Route: 065
     Dates: start: 20211103, end: 20211110
  14. MOMETASONE FUROATE [Concomitant]
     Active Substance: MOMETASONE FUROATE
     Indication: Upper-airway cough syndrome
     Dosage: TIME INTERVAL: AS NECESSARY
     Route: 065
     Dates: start: 2016
  15. FLUDROCORTISONE [Concomitant]
     Active Substance: FLUDROCORTISONE
     Indication: Orthostatic hypotension
     Route: 065
     Dates: start: 202004
  16. CLOTRIMAZOLE [Concomitant]
     Active Substance: CLOTRIMAZOLE
     Indication: Vaginal discharge
     Dates: start: 20210908, end: 20210908
  17. Mirabegron MR [Concomitant]
     Indication: Pollakiuria
     Route: 065
     Dates: start: 202002
  18. SLOW K [Concomitant]
     Active Substance: POTASSIUM CHLORIDE
     Indication: Hypokalaemia
     Route: 065
     Dates: start: 20201214
  19. TEMAZEPAM [Concomitant]
     Active Substance: TEMAZEPAM
     Indication: Insomnia
     Dosage: TIME INTERVAL: AS NECESSARY
     Route: 065
     Dates: start: 2012
  20. AMITRIPTYLINE [Concomitant]
     Active Substance: AMITRIPTYLINE
     Indication: Back pain
     Dosage: TIME INTERVAL: 0.33333333 DAYS
     Route: 048
     Dates: start: 2000
  21. Panafortelone Prednisolone [Concomitant]
     Indication: Arthritis
     Route: 065
     Dates: start: 20211103, end: 20211120
  22. Panafortelone Prednisolone [Concomitant]
     Indication: Arthritis
     Route: 065
     Dates: start: 20211121
  23. Colecalciferol Vitamin D3 [Concomitant]
     Indication: Routine health maintenance
     Dosage: 25MCG/1000IU
     Route: 065
     Dates: start: 202003
  24. MAGNESIUM ASPARTAT [Concomitant]
     Indication: Hypomagnesaemia
     Route: 065
     Dates: start: 202003
  25. OXYCODONE [Concomitant]
     Active Substance: OXYCODONE
     Indication: Headache
     Dosage: TIME INTERVAL: AS NECESSARY
     Route: 065
     Dates: start: 202005
  26. Tramadol MR [Concomitant]
     Indication: Back pain
     Route: 065
     Dates: start: 1995
  27. PLATELETS [Concomitant]
     Active Substance: HUMAN PLATELET, ALLOGENIC
     Indication: Thrombocytopenia
     Route: 065
     Dates: start: 20211109, end: 20211109
  28. PANADOL [Concomitant]
     Active Substance: ACETAMINOPHEN
     Indication: Headache
     Dosage: AS NEEDED
     Route: 065
     Dates: start: 202007

REACTIONS (1)
  - Hypoxia [Recovered/Resolved]

NARRATIVE: CASE EVENT DATE: 20210505
